FAERS Safety Report 8559344-4 (Version None)
Quarter: 2012Q3

REPORT INFORMATION
  Report Type: 
  Country: None (occurrence: None)
  Receive Date: 20120802
  Receipt Date: 20120731
  Transmission Date: 20120928
  Serious: Yes (Other)
  Sender: FDA-Public Use
  Company Number: PHHY2012NL051902

PATIENT
  Sex: Female
  Weight: 120 kg

DRUGS (5)
  1. ZOMETA [Suspect]
     Indication: METASTASES TO BONE
     Dosage: 4 MG/100 ML, ONCE EVERY 12 WEEKS
  2. ZOMETA [Suspect]
     Dosage: 4 MG/100 ML, ONCE EVERY 12 WEEKS
     Dates: start: 20120423
  3. ZOMETA [Suspect]
     Dosage: 4 MG/100 ML, ONCE EVERY 4 WEEKS
     Dates: start: 20120615
  4. XELODA [Concomitant]
     Dosage: 2 DF, UNK
  5. LEVOTHYROXINE SODIUM [Concomitant]

REACTIONS (3)
  - COUGH [None]
  - UPPER RESPIRATORY TRACT INFECTION [None]
  - RIB FRACTURE [None]
